FAERS Safety Report 15673858 (Version 4)
Quarter: 2019Q4

REPORT INFORMATION
  Report Type: Spontaneous
  Country: US (occurrence: US)
  Receive Date: 20181129
  Receipt Date: 20191220
  Transmission Date: 20200122
  Serious: Yes (Hospitalization, Other)
  Sender: FDA-Public Use
  Company Number: US-PFIZER INC-2018455307

PATIENT
  Age: 87 Year
  Sex: Female

DRUGS (1)
  1. AMLODIPINE BESILATE [Suspect]
     Active Substance: AMLODIPINE BESYLATE
     Dosage: 5 MG, UNK

REACTIONS (10)
  - Nausea [Unknown]
  - Oesophageal disorder [Unknown]
  - Ecchymosis [Unknown]
  - Dizziness [Unknown]
  - Vomiting [Unknown]
  - Brain neoplasm [Unknown]
  - Drug ineffective [Unknown]
  - Muscle spasms [Unknown]
  - Headache [Unknown]
  - Hypertension [Unknown]
